FAERS Safety Report 25177795 (Version 1)
Quarter: 2025Q2

REPORT INFORMATION
  Report Type: Spontaneous
  Country: US (occurrence: US)
  Receive Date: 20250409
  Receipt Date: 20250409
  Transmission Date: 20250717
  Serious: No
  Sender: SANDOZ
  Company Number: US-SANDOZ-SDZ2025US020063

PATIENT
  Sex: Female

DRUGS (3)
  1. ESTRADIOL [Suspect]
     Active Substance: ESTRADIOL
     Indication: Ovarian operation
     Route: 065
  2. ESTRADIOL [Suspect]
     Active Substance: ESTRADIOL
     Indication: Ovarian operation
     Route: 065
  3. VIVELLE-DOT [Suspect]
     Active Substance: ESTRADIOL
     Indication: Ovarian operation
     Route: 065

REACTIONS (5)
  - Menopausal symptoms [Unknown]
  - Emotional distress [Unknown]
  - Dermatitis contact [Unknown]
  - Drug ineffective [Unknown]
  - Product availability issue [Unknown]
